FAERS Safety Report 8389213-4 (Version None)
Quarter: 2012Q2

REPORT INFORMATION
  Report Type: 
  Country: None (occurrence: None)
  Receive Date: 20120528
  Receipt Date: 20120521
  Transmission Date: 20120825
  Serious: Yes (Hospitalization)
  Sender: FDA-Public Use
  Company Number: PHFR2012GB002197

PATIENT
  Sex: Male

DRUGS (6)
  1. PREGABALIN [Concomitant]
     Indication: ANGIOPATHY
     Dosage: 75 MG, BID
     Route: 048
  2. SPIRONOLACTONE [Concomitant]
     Indication: BLOOD PRESSURE INCREASED
     Dosage: 50 MG, QD
     Route: 048
  3. MORPHINE SULFATE [Concomitant]
     Indication: ANGIOPATHY
     Dosage: 50 MG, BID
     Route: 048
  4. ACETAMINOPHEN AND CODEINE PHOSPHATE [Concomitant]
     Indication: ANGIOPATHY
     Route: 048
  5. CLOZARIL [Suspect]
     Indication: SCHIZOPHRENIA
     Dosage: 175 MG, QD
     Route: 048
     Dates: start: 20110321
  6. ATORVASTATIN CALCIUM [Concomitant]
     Indication: BLOOD PRESSURE INCREASED
     Dosage: 10 MG, QD
     Route: 048

REACTIONS (4)
  - LUNG NEOPLASM MALIGNANT [None]
  - LOWER RESPIRATORY TRACT INFECTION [None]
  - PNEUMONIA [None]
  - LYMPHADENITIS [None]
